APPROVED DRUG PRODUCT: MINIVELLE
Active Ingredient: ESTRADIOL
Strength: 0.1MG/24HR
Dosage Form/Route: FILM, EXTENDED RELEASE;TRANSDERMAL
Application: N203752 | Product #004 | TE Code: AB3
Applicant: NOVEN PHARMACEUTICALS INC
Approved: Oct 29, 2012 | RLD: Yes | RS: Yes | Type: RX

PATENTS:
Patent 9730900 | Expires: Jul 10, 2028
Patent 9833419 | Expires: Jul 10, 2028
Patent 8231906 | Expires: Jul 4, 2030